FAERS Safety Report 9476597 (Version 2)
Quarter: 2013Q4

REPORT INFORMATION
  Report Type: Spontaneous
  Country: BR (occurrence: BR)
  Receive Date: 20130826
  Receipt Date: 20131017
  Transmission Date: 20140711
  Serious: Yes (Other)
  Sender: FDA-Public Use
  Company Number: BR-AMGEN-BRASP2013059114

PATIENT
  Age: 61 Year
  Sex: Female
  Weight: 74 kg

DRUGS (1)
  1. ENBREL [Suspect]
     Indication: RHEUMATOID ARTHRITIS
     Dosage: 50 MG, ONCE WEEKLY
     Route: 058
     Dates: start: 201306

REACTIONS (6)
  - Rheumatoid arthritis [Recovering/Resolving]
  - Disease progression [Recovering/Resolving]
  - Pain [Recovering/Resolving]
  - Wheelchair user [Not Recovered/Not Resolved]
  - Gait disturbance [Unknown]
  - Lung disorder [Unknown]
